FAERS Safety Report 5262364-9 (Version None)
Quarter: 2007Q1

REPORT INFORMATION
  Report Type: 
  Country: None (occurrence: None)
  Receive Date: 20070308
  Receipt Date: 20070220
  Transmission Date: 20070707
  Serious: Yes (Other)
  Sender: FDA-Public Use
  Company Number: 15771

PATIENT
  Age: 68 Year
  Sex: Male

DRUGS (9)
  1. AMIODARONE HYDROCHLORIDE [Suspect]
     Dosage: 200 MG DAILY
  2. ASPIRIN [Suspect]
     Dosage: 75 MG DAILY
  3. DIGOXIN [Suspect]
     Dosage: 0.125 MG DAILY
  4. FUROSEMIDE [Suspect]
     Dosage: 80 MG BID
  5. ACIPIMOX [Suspect]
     Dosage: 250 MG BID
  6. BISOPROLOL [Suspect]
     Dosage: 7.5 MG DAILY
  7. EZETIMIBE [Suspect]
     Dosage: 10 MG DAILY
  8. LANSOPRAZOLE [Suspect]
     Dosage: 30 MG DAILY
  9. PERINDOPRIL ERBUMINE [Suspect]
     Dosage: 2 MG DAILY

REACTIONS (6)
  - DIZZINESS [None]
  - DYSPNOEA [None]
  - FATIGUE [None]
  - FEELING ABNORMAL [None]
  - OEDEMA [None]
  - PARAESTHESIA [None]
